FAERS Safety Report 9285872 (Version 2)
Quarter: 2013Q3

REPORT INFORMATION
  Report Type: Spontaneous
  Country: US (occurrence: US)
  Receive Date: 20130513
  Receipt Date: 20130701
  Transmission Date: 20140515
  Serious: No
  Sender: FDA-Public Use
  Company Number: US-PFIZER INC-2013146874

PATIENT
  Age: 32 Year
  Sex: Female
  Weight: 54 kg

DRUGS (5)
  1. PRISTIQ [Suspect]
     Indication: DEPRESSION
     Dosage: UNK, 1X/DAY
     Route: 048
  2. PRISTIQ [Suspect]
     Indication: ANXIETY
     Dosage: 50 MG, 1X/DAY
     Route: 048
     Dates: start: 20120214, end: 2012
  3. MAITAKE SX FRACTION [Suspect]
     Indication: DIABETES MELLITUS
     Dosage: 1050 MG, 2X/DAY
     Route: 048
     Dates: start: 201101
  4. NATURETHROID [Concomitant]
     Indication: THYROID DISORDER
     Dosage: UNK
  5. INSULIN [Concomitant]

REACTIONS (4)
  - Drug ineffective [Unknown]
  - Blood glucose normal [Unknown]
  - Therapeutic response unexpected [Unknown]
  - Intentional drug misuse [Unknown]
